FAERS Safety Report 8345436-1 (Version None)
Quarter: 2012Q2

REPORT INFORMATION
  Report Type: 
  Country: None (occurrence: None)
  Receive Date: 20120508
  Receipt Date: 20120413
  Transmission Date: 20120825
  Serious: Yes (Hospitalization)
  Sender: FDA-Public Use
  Company Number: DK-BAXTER-2012BH004367

PATIENT
  Sex: Male
  Weight: 81 kg

DRUGS (32)
  1. VINCRISTINE [Suspect]
     Route: 042
     Dates: start: 20110426
  2. DOXORUBICIN HCL [Suspect]
     Route: 042
     Dates: start: 20110426
  3. MORPHINE SULFATE [Concomitant]
     Indication: PAIN
     Route: 048
  4. CYCLOPHOSPHAMIDE [Suspect]
     Indication: DIFFUSE LARGE B-CELL LYMPHOMA
     Route: 042
     Dates: start: 20110803
  5. CYCLOPHOSPHAMIDE [Suspect]
     Route: 042
     Dates: start: 20110426
  6. PREDNISONE TAB [Suspect]
     Route: 048
     Dates: start: 20110426
  7. MORPHINE [Concomitant]
     Indication: PAIN
  8. ACYCLOVIR [Concomitant]
     Indication: PROPHYLAXIS
     Route: 048
     Dates: start: 20110412
  9. NEUPOGEN [Suspect]
     Route: 058
     Dates: start: 20110629
  10. DOXORUBICIN HCL [Suspect]
     Indication: DIFFUSE LARGE B-CELL LYMPHOMA
     Route: 042
     Dates: start: 20110803
  11. DOXORUBICIN HCL [Suspect]
     Route: 042
     Dates: start: 20110628
  12. VINCRISTINE [Suspect]
     Indication: DIFFUSE LARGE B-CELL LYMPHOMA
     Dosage: DOSAGE FORM: UNSPECIFIED
     Route: 042
  13. VINCRISTINE [Suspect]
     Route: 042
     Dates: start: 20110628
  14. RITUXIMAB [Suspect]
     Route: 042
     Dates: start: 20110628
  15. RITUXIMAB [Suspect]
     Route: 042
     Dates: start: 20110503
  16. RITUXIMAB [Suspect]
     Route: 042
     Dates: start: 20110426
  17. SENNOSIDE A+B [Concomitant]
     Indication: PRODUCT USED FOR UNKNOWN INDICATION
     Route: 065
  18. LANSOPRAZOLE [Concomitant]
     Indication: PROPHYLAXIS
     Route: 048
  19. FUROSEMIDE [Concomitant]
     Indication: PAIN
     Route: 048
  20. RITUXIMAB [Suspect]
     Route: 042
     Dates: start: 20110702, end: 20110702
  21. ENOXAPARIN SODIUM [Concomitant]
     Indication: PAIN
     Route: 058
     Dates: start: 20110826
  22. NEUPOGEN [Suspect]
     Indication: DIFFUSE LARGE B-CELL LYMPHOMA
     Route: 058
     Dates: start: 20110804
  23. AMLODIPINE BESYLATE [Concomitant]
     Indication: HYPERTENSION
     Route: 048
     Dates: start: 20110415
  24. LACTULOSE [Concomitant]
     Route: 048
  25. ALLOPURINOL [Concomitant]
     Indication: PROPHYLAXIS
     Route: 048
     Dates: start: 20110412, end: 20110708
  26. SULFAMETHOXAZOLE + TRIMETHOPRIM [Concomitant]
     Indication: PROPHYLAXIS
     Dosage: 400/80 MG
     Route: 048
     Dates: start: 20110628
  27. CYCLOPHOSPHAMIDE [Suspect]
     Dosage: DOSAGE FORM: UNSPECIFIED
     Route: 042
     Dates: start: 20110628
  28. NEUPOGEN [Suspect]
     Route: 058
     Dates: start: 20110427
  29. PREDNISONE TAB [Suspect]
     Indication: DIFFUSE LARGE B-CELL LYMPHOMA
     Route: 048
     Dates: start: 20110803
  30. PREDNISONE TAB [Suspect]
     Route: 048
     Dates: start: 20110628
  31. RITUXIMAB [Suspect]
     Indication: DIFFUSE LARGE B-CELL LYMPHOMA
     Route: 042
     Dates: start: 20110803
  32. MOVICOL                            /01625101/ [Concomitant]
     Route: 065

REACTIONS (5)
  - PNEUMONIA [None]
  - MUSCLE RUPTURE [None]
  - PYREXIA [None]
  - PULMONARY EMBOLISM [None]
  - FEBRILE NEUTROPENIA [None]
